FAERS Safety Report 21713178 (Version 7)
Quarter: 2023Q1

REPORT INFORMATION
  Report Type: Report from Study
  Country: GB (occurrence: GB)
  Receive Date: 20221212
  Receipt Date: 20230213
  Transmission Date: 20230417
  Serious: Yes (Hospitalization, Other)
  Sender: FDA-Public Use
  Company Number: GB-TAKEDA-2022TUS079129

PATIENT
  Sex: Male

DRUGS (2)
  1. VEDOLIZUMAB [Suspect]
     Active Substance: VEDOLIZUMAB
     Indication: Colitis ulcerative
     Dosage: UNK
     Route: 042
  2. VEDOLIZUMAB [Suspect]
     Active Substance: VEDOLIZUMAB
     Indication: Colitis ulcerative
     Dosage: 108 MILLIGRAM, Q2WEEKS
     Route: 058
     Dates: start: 20221117

REACTIONS (16)
  - Anaemia [Unknown]
  - Cellulitis [Not Recovered/Not Resolved]
  - Thrombosis [Unknown]
  - Lower limb fracture [Recovering/Resolving]
  - Gastrointestinal carcinoma [Unknown]
  - Fall [Recovering/Resolving]
  - Wound [Unknown]
  - Ankle fracture [Unknown]
  - Fear of injection [Unknown]
  - Arthritis [Unknown]
  - Dyspnoea [Unknown]
  - Feeling cold [Unknown]
  - Nasopharyngitis [Unknown]
  - Fatigue [Unknown]
  - Cough [Unknown]
  - Product dose omission issue [Not Recovered/Not Resolved]
